FAERS Safety Report 20371338 (Version 1)
Quarter: 2022Q1

REPORT INFORMATION
  Report Type: Spontaneous
  Country: US (occurrence: US)
  Receive Date: 20220124
  Receipt Date: 20220124
  Transmission Date: 20220423
  Serious: No
  Sender: FDA-Public Use
  Company Number: US-BRACCO-2021US00622

PATIENT
  Sex: Female

DRUGS (3)
  1. CARDIOGEN-82 [Suspect]
     Active Substance: RUBIDIUM CHLORIDE RB-82
     Indication: Cardiac stress test
     Dosage: 26.3 MCI, SINGLE
     Route: 042
     Dates: start: 20210216, end: 20210216
  2. CARDIOGEN-82 [Suspect]
     Active Substance: RUBIDIUM CHLORIDE RB-82
     Indication: Cardiac stress test
     Dosage: 25.8 MCI, SINGLE
     Route: 042
     Dates: start: 20210216, end: 20210216
  3. SODIUM CHLORIDE [Concomitant]
     Active Substance: SODIUM CHLORIDE
     Dosage: UNK
     Route: 042
     Dates: start: 20210216, end: 20210216

REACTIONS (1)
  - Occupational exposure to radiation [Unknown]

NARRATIVE: CASE EVENT DATE: 20210216
